FAERS Safety Report 15493012 (Version 12)
Quarter: 2020Q4

REPORT INFORMATION
  Report Type: Spontaneous
  Country: US (occurrence: US)
  Receive Date: 20181012
  Receipt Date: 20201109
  Transmission Date: 20210113
  Serious: Yes (Death, Hospitalization, Disabling, Other)
  Sender: FDA-Public Use
  Company Number: US-SA-2018SA276866

PATIENT

DRUGS (2)
  1. DUPIXENT [Suspect]
     Active Substance: DUPILUMAB
     Indication: PSORIASIS
     Dosage: 300 MG, QOW
     Route: 058
     Dates: start: 20170926
  2. DUPIXENT [Suspect]
     Active Substance: DUPILUMAB
     Indication: DERMATITIS ATOPIC

REACTIONS (25)
  - Dyspnoea [Recovering/Resolving]
  - Acrochordon [Unknown]
  - Drug hypersensitivity [Unknown]
  - Eye pruritus [Unknown]
  - Therapeutic response decreased [Unknown]
  - Death [Fatal]
  - Cough [Recovering/Resolving]
  - Bronchospasm [Recovering/Resolving]
  - Eczema [Unknown]
  - Wheezing [Recovering/Resolving]
  - Visual impairment [Unknown]
  - Lacrimation increased [Recovering/Resolving]
  - Eye discharge [Unknown]
  - Rebound atopic dermatitis [Unknown]
  - Vulvovaginal pruritus [Recovered/Resolved]
  - Dysphonia [Recovering/Resolving]
  - Product use in unapproved indication [Unknown]
  - Cataract [Unknown]
  - Condition aggravated [Unknown]
  - Nodular rash [Recovering/Resolving]
  - Lip swelling [Unknown]
  - Lip exfoliation [Unknown]
  - Chronic obstructive pulmonary disease [Recovering/Resolving]
  - Hospitalisation [Unknown]
  - Dysuria [Unknown]

NARRATIVE: CASE EVENT DATE: 20180210
